FAERS Safety Report 13953260 (Version 1)
Quarter: 2017Q3

REPORT INFORMATION
  Report Type: Spontaneous
  Country: US (occurrence: US)
  Receive Date: 20170911
  Receipt Date: 20170911
  Transmission Date: 20171128
  Serious: No
  Sender: FDA-Public Use
  Company Number: US-TEVA-685383USA

PATIENT
  Sex: Female

DRUGS (6)
  1. ATORVASTATIN [Concomitant]
     Active Substance: ATORVASTATIN
  2. MYRBETRIQ [Interacting]
     Active Substance: MIRABEGRON
     Indication: POLLAKIURIA
     Dates: start: 201607
  3. OMEPRAZOLE [Concomitant]
  4. ESTRADIOL [Concomitant]
  5. VENLAFAXINE [Suspect]
     Active Substance: VENLAFAXINE HYDROCHLORIDE
     Indication: ANTIDEPRESSANT THERAPY
  6. SYNTHROID [Concomitant]

REACTIONS (3)
  - Constipation [Unknown]
  - Drug interaction [Unknown]
  - Irritable bowel syndrome [Unknown]
